FAERS Safety Report 18231333 (Version 1)
Quarter: 2020Q3

REPORT INFORMATION
  Report Type: Spontaneous
  Country: AU (occurrence: AU)
  Receive Date: 20200904
  Receipt Date: 20200904
  Transmission Date: 20201103
  Serious: Yes (Other)
  Sender: FDA-Public Use
  Company Number: AU-ASTRAZENECA-2019SF02304

PATIENT
  Age: 59 Year
  Sex: Female

DRUGS (1)
  1. DURVALUMAB. [Suspect]
     Active Substance: DURVALUMAB
     Indication: NON-SMALL CELL LUNG CANCER
     Route: 042

REACTIONS (5)
  - Cough [Recovering/Resolving]
  - Radiation pneumonitis [Recovering/Resolving]
  - Dyspnoea [Recovering/Resolving]
  - Pneumonitis [Recovering/Resolving]
  - Exercise tolerance decreased [Recovering/Resolving]
